FAERS Safety Report 12809232 (Version 3)
Quarter: 2016Q4

REPORT INFORMATION
  Report Type: Report from Study
  Country: CA (occurrence: CA)
  Receive Date: 20161004
  Receipt Date: 20161207
  Transmission Date: 20170207
  Serious: Yes (Hospitalization, Other)
  Sender: FDA-Public Use
  Company Number: CA-TAKEDA-2016TUS017467

PATIENT
  Age: 62 Year
  Sex: Female

DRUGS (4)
  1. MEZAVANT [Concomitant]
     Active Substance: MESALAMINE
     Dosage: UNK
  2. FOSAMAX [Concomitant]
     Active Substance: ALENDRONATE SODIUM
     Indication: OSTEOPOROSIS
  3. VEDOLIZUMAB [Suspect]
     Active Substance: VEDOLIZUMAB
     Indication: COLITIS ULCERATIVE
     Dosage: 300 MG, UNK
     Route: 042
     Dates: start: 20160425
  4. PREDNISONE. [Concomitant]
     Active Substance: PREDNISONE
     Dosage: 30 MG, UNK

REACTIONS (1)
  - Hip fracture [Unknown]
